FAERS Safety Report 5167852-1 (Version None)
Quarter: 2006Q4

REPORT INFORMATION
  Report Type: 
  Country: None (occurrence: None)
  Receive Date: 20061208
  Receipt Date: 20061204
  Transmission Date: 20070319
  Serious: Yes (Death)
  Sender: FDA-Public Use
  Company Number: PHBS2006US18874

PATIENT
  Age: 54 Year
  Sex: Male

DRUGS (5)
  1. COCAINE [Suspect]
     Dosage: 1 G, UNK
     Route: 045
  2. ASPIRIN [Concomitant]
  3. NITROGLYCERIN [Concomitant]
  4. DIAZEPAM [Concomitant]
     Dosage: 15 MG/DAY
     Route: 042
  5. METOPROLOL SUCCINATE [Suspect]
     Dosage: 2.5 MG, BID
     Route: 042

REACTIONS (7)
  - AKINESIA [None]
  - CARDIAC ARREST [None]
  - CHEST PAIN [None]
  - DRUG INTERACTION [None]
  - ECHOCARDIOGRAM ABNORMAL [None]
  - ELECTROCARDIOGRAM ABNORMAL [None]
  - LOSS OF CONSCIOUSNESS [None]
